FAERS Safety Report 8155708-1 (Version None)
Quarter: 2012Q1

REPORT INFORMATION
  Report Type: 
  Country: None (occurrence: None)
  Receive Date: 20120222
  Receipt Date: 20120210
  Transmission Date: 20120608
  Serious: Yes (Hospitalization, Other)
  Sender: FDA-Public Use
  Company Number: CA-JNJFOC-20120206073

PATIENT
  Sex: Female
  Weight: 77.9 kg

DRUGS (5)
  1. REMICADE [Suspect]
     Indication: CROHN'S DISEASE
     Dosage: 3RD LOADING DOSE
     Route: 042
  2. ADALAT [Concomitant]
     Route: 065
  3. METHOTREXATE [Concomitant]
     Route: 065
  4. FOLIC ACID [Concomitant]
     Route: 065
  5. DEMEROL [Concomitant]
     Route: 065

REACTIONS (4)
  - RESPIRATORY TRACT CONGESTION [None]
  - VOMITING [None]
  - NECK PAIN [None]
  - DIARRHOEA [None]
